FAERS Safety Report 7706183-X (Version None)
Quarter: 2011Q3

REPORT INFORMATION
  Report Type: 
  Country: None (occurrence: None)
  Receive Date: 20110824
  Receipt Date: 20110817
  Transmission Date: 20111222
  Serious: Yes (Life-Threatening, Hospitalization)
  Sender: FDA-Public Use
  Company Number: JP-ELI_LILLY_AND_COMPANY-JP201108005511

PATIENT
  Age: 59 Year
  Sex: Female

DRUGS (1)
  1. GEMZAR [Suspect]
     Indication: BREAST CANCER
     Dosage: 1250 MG/M2, OTHER
     Route: 042
     Dates: start: 20110301

REACTIONS (2)
  - TUMOUR LYSIS SYNDROME [None]
  - ANAEMIA [None]
